FAERS Safety Report 9133339 (Version 1)
Quarter: 2013Q1

REPORT INFORMATION
  Report Type: Spontaneous
  Country: JP (occurrence: JP)
  Receive Date: 20130301
  Receipt Date: 20130301
  Transmission Date: 20140127
  Serious: Yes (Hospitalization, Other)
  Sender: FDA-Public Use
  Company Number: JP-B.I. PHARMACEUTICALS,INC./RIDGEFIELD-2013-BI-01162NB

PATIENT
  Age: 79 Year
  Sex: Male
  Weight: 57.7 kg

DRUGS (10)
  1. PRAZAXA [Suspect]
     Dosage: 220 MG
     Route: 048
     Dates: end: 20130107
  2. MAINTATE [Concomitant]
     Dosage: 5 MG
     Route: 048
  3. EC-DOPARL [Concomitant]
     Route: 065
  4. TECHNIS [Concomitant]
     Route: 065
  5. SUNBAZON [Concomitant]
     Route: 065
  6. METHYCOBAL [Concomitant]
     Route: 065
  7. CEPHADOL [Concomitant]
     Route: 065
  8. APLACE [Concomitant]
     Route: 065
  9. MERISLON [Concomitant]
     Route: 065
  10. LETRAC [Concomitant]
     Route: 065

REACTIONS (5)
  - Dizziness [Recovered/Resolved]
  - Fall [Recovered/Resolved]
  - Subdural haematoma [Recovered/Resolved]
  - Fall [Recovered/Resolved]
  - Contusion [Recovered/Resolved]
